FAERS Safety Report 7780615-3 (Version None)
Quarter: 2011Q3

REPORT INFORMATION
  Report Type: 
  Country: None (occurrence: None)
  Receive Date: 20110927
  Receipt Date: 20101011
  Transmission Date: 20111222
  Serious: No
  Sender: FDA-Public Use
  Company Number: US-BRISTOL-MYERS SQUIBB COMPANY-15327331

PATIENT
  Age: 57 Year
  Sex: Female

DRUGS (6)
  1. AVAPRO [Suspect]
     Dates: start: 20100801
  2. METFORMIN HCL [Concomitant]
  3. LORATADINE [Concomitant]
  4. CEPHALEXIN [Concomitant]
  5. GLIPIZIDE [Concomitant]
  6. CALCIUM CARBONATE [Concomitant]

REACTIONS (7)
  - OEDEMA PERIPHERAL [None]
  - PRODUCTIVE COUGH [None]
  - INFLUENZA LIKE ILLNESS [None]
  - ABDOMINAL DISTENSION [None]
  - OROPHARYNGEAL PAIN [None]
  - DIARRHOEA [None]
  - WHEEZING [None]
